FAERS Safety Report 4902208-5 (Version None)
Quarter: 2006Q1

REPORT INFORMATION
  Report Type: 
  Country: None (occurrence: None)
  Receive Date: 20060207
  Receipt Date: 20060105
  Transmission Date: 20060701
  Serious: Yes (Hospitalization)
  Sender: FDA-Public Use
  Company Number: FR-ROCHE-431025

PATIENT
  Age: 43 Year
  Sex: Male
  Weight: 77 kg

DRUGS (2)
  1. PEGASYS [Suspect]
     Dosage: 180 MCG/WEEK.
     Route: 058
     Dates: start: 20041015, end: 20050123
  2. REBETOL [Concomitant]
     Dates: start: 20041015

REACTIONS (3)
  - NEPHROTIC SYNDROME [None]
  - PYREXIA [None]
  - RENAL FAILURE ACUTE [None]
